FAERS Safety Report 6245486-5 (Version None)
Quarter: 2009Q2

REPORT INFORMATION
  Report Type: 
  Country: None (occurrence: None)
  Receive Date: 20090619
  Receipt Date: 20090306
  Transmission Date: 20091009
  Serious: No
  Sender: FDA-Public Use
  Company Number: ALL1-2009-00622

PATIENT
  Sex: Male

DRUGS (1)
  1. VYVANSE [Suspect]
     Dosage: 20 MG, 1X/DAY:QD, ORAL
     Route: 048

REACTIONS (5)
  - AGGRESSION [None]
  - ANGER [None]
  - CRYING [None]
  - INSOMNIA [None]
  - NEGATIVISM [None]
